FAERS Safety Report 6696252-8 (Version None)
Quarter: 2010Q2

REPORT INFORMATION
  Report Type: 
  Country: None (occurrence: None)
  Receive Date: 20100426
  Receipt Date: 20100415
  Transmission Date: 20101027
  Serious: Yes (Other)
  Sender: FDA-Public Use
  Company Number: US-ASTRAZENECA-2010SE16697

PATIENT
  Age: 29 Year
  Sex: Male
  Weight: 72.6 kg

DRUGS (10)
  1. SEROQUEL [Suspect]
     Indication: CROHN'S DISEASE
     Route: 048
  2. REMICADE [Suspect]
     Indication: CROHN'S DISEASE
     Route: 042
     Dates: start: 20020226, end: 20031015
  3. NARCOTIC ANALGESICS [Suspect]
     Indication: CROHN'S DISEASE
  4. ANTIDEPRESSANTS [Suspect]
     Indication: CROHN'S DISEASE
  5. PREDNISONE [Concomitant]
     Indication: CROHN'S DISEASE
  6. ADALIMUMAB [Concomitant]
     Indication: CROHN'S DISEASE
  7. ANTIBIOTICS [Concomitant]
     Indication: CROHN'S DISEASE
  8. AZATHIOPRINE [Concomitant]
     Indication: CROHN'S DISEASE
  9. CYCLOSPORINE [Concomitant]
     Indication: CROHN'S DISEASE
  10. MESALAMINE [Concomitant]
     Indication: CROHN'S DISEASE

REACTIONS (9)
  - ARTHRALGIA [None]
  - ARTHRITIS [None]
  - DRUG DEPENDENCE [None]
  - HEADACHE [None]
  - MUSCLE SPASMS [None]
  - MYALGIA [None]
  - NAUSEA [None]
  - OSTEONECROSIS [None]
  - UNRESPONSIVE TO STIMULI [None]
